FAERS Safety Report 5492227-5 (Version None)
Quarter: 2007Q4

REPORT INFORMATION
  Report Type: 
  Country: None (occurrence: None)
  Receive Date: 20071022
  Receipt Date: 20071011
  Transmission Date: 20080405
  Serious: Yes (Other)
  Sender: FDA-Public Use
  Company Number: US-ROCHE-473407

PATIENT
  Sex: Female
  Weight: 48.5 kg

DRUGS (7)
  1. ACCUTANE [Suspect]
     Route: 048
     Dates: start: 19890309, end: 19890801
  2. ACCUTANE [Suspect]
     Route: 048
     Dates: start: 19920801, end: 19921201
  3. CLEOCIN HYDROCHLORIDE [Concomitant]
     Dates: start: 19900817
  4. PREDNISONE [Concomitant]
     Dates: start: 19900625
  5. RETIN-A [Concomitant]
     Dates: start: 19900817
  6. TETRACYCLINE [Concomitant]
     Dates: start: 19910903
  7. AMOXICILLIN [Concomitant]
     Dates: start: 19900309

REACTIONS (25)
  - ABDOMINAL PAIN [None]
  - ANAEMIA [None]
  - ANAL FISTULA [None]
  - ARTHRALGIA [None]
  - ARTHRITIS [None]
  - COLITIS [None]
  - COLITIS ULCERATIVE [None]
  - CROHN'S DISEASE [None]
  - GASTROOESOPHAGEAL REFLUX DISEASE [None]
  - HAEMORRHOIDS [None]
  - HEADACHE [None]
  - INFLAMMATORY BOWEL DISEASE [None]
  - INTESTINAL HAEMORRHAGE [None]
  - IRON DEFICIENCY ANAEMIA [None]
  - IRRITABLE BOWEL SYNDROME [None]
  - LYMPHADENITIS [None]
  - NAUSEA [None]
  - OESOPHAGITIS [None]
  - OSTEOPENIA [None]
  - OSTEOPOROSIS [None]
  - PHARYNGITIS [None]
  - PSEUDOPOLYP [None]
  - RECTAL HAEMORRHAGE [None]
  - VOMITING [None]
  - WEIGHT DECREASED [None]
